FAERS Safety Report 5768046-9 (Version None)
Quarter: 2008Q2

REPORT INFORMATION
  Report Type: 
  Country: None (occurrence: None)
  Receive Date: 20080612
  Receipt Date: 20070622
  Transmission Date: 20081010
  Serious: No
  Sender: FDA-Public Use
  Company Number: US-ASTRAZENECA-2007UW12523

PATIENT
  Age: 45 Year
  Sex: Female

DRUGS (12)
  1. FASLODEX [Suspect]
     Indication: BREAST CANCER
     Route: 030
     Dates: start: 20041101
  2. KLONOPIN [Concomitant]
  3. LEXAPRO [Concomitant]
  4. NEURONTIN [Concomitant]
  5. BUMEX [Concomitant]
  6. ALDACTONE [Concomitant]
  7. ALLEGRA [Concomitant]
  8. METHADONE HCL [Concomitant]
  9. ADVAIR DISKUS 100/50 [Concomitant]
  10. LACTULOSE [Concomitant]
  11. PREVACID [Concomitant]
  12. ZOMETA [Concomitant]

REACTIONS (3)
  - BACK PAIN [None]
  - DEPRESSION [None]
  - WEIGHT INCREASED [None]
